FAERS Safety Report 25084855 (Version 3)
Quarter: 2025Q3

REPORT INFORMATION
  Report Type: Spontaneous
  Country: JP (occurrence: JP)
  Receive Date: 20250317
  Receipt Date: 20250809
  Transmission Date: 20251021
  Serious: No
  Sender: ALEXION PHARMACEUTICALS
  Company Number: JP-ASTRAZENECA-250015967_032810_P_1

PATIENT
  Age: 83 Year
  Sex: Male

DRUGS (3)
  1. BREZTRI [Suspect]
     Active Substance: BUDESONIDE\FORMOTEROL\GLYCOPYRROLATE
     Indication: Chronic obstructive pulmonary disease
  2. MONTELUKAST [Concomitant]
     Active Substance: MONTELUKAST
     Route: 065
  3. CARBOCYSTEINE [Concomitant]
     Active Substance: CARBOCYSTEINE
     Route: 065

REACTIONS (1)
  - Eosinophil count decreased [Recovering/Resolving]

NARRATIVE: CASE EVENT DATE: 20250212
